FAERS Safety Report 15639561 (Version 4)
Quarter: 2021Q4

REPORT INFORMATION
  Report Type: Spontaneous
  Country: US (occurrence: US)
  Receive Date: 20181120
  Receipt Date: 20211022
  Transmission Date: 20220303
  Serious: Yes (Other)
  Sender: FDA-Public Use
  Company Number: US-PFIZER INC-2018474911

PATIENT
  Age: 81 Year
  Sex: Female

DRUGS (1)
  1. LYRICA [Suspect]
     Active Substance: PREGABALIN
     Indication: Neuropathy peripheral
     Dosage: 450 MG, DAILY (150 MG 1 MORNING 2 BEDTIME)
     Dates: start: 2016

REACTIONS (11)
  - Blindness [Unknown]
  - Mobility decreased [Not Recovered/Not Resolved]
  - Dizziness [Not Recovered/Not Resolved]
  - Somnolence [Not Recovered/Not Resolved]
  - Confusional state [Not Recovered/Not Resolved]
  - Disturbance in attention [Unknown]
  - Pain in extremity [Unknown]
  - Sensory loss [Unknown]
  - Balance disorder [Unknown]
  - Motor dysfunction [Unknown]
  - Breast swelling [Unknown]

NARRATIVE: CASE EVENT DATE: 20160101
